FAERS Safety Report 15261239 (Version 2)
Quarter: 2018Q3

REPORT INFORMATION
  Report Type: Report from Study
  Country: US (occurrence: US)
  Receive Date: 20180809
  Receipt Date: 20180925
  Transmission Date: 20181010
  Serious: Yes (Hospitalization, Disabling, Other)
  Sender: FDA-Public Use
  Company Number: US-SHIRE-US201830278

PATIENT
  Age: 19 Year
  Sex: Male
  Weight: 115.4 kg

DRUGS (15)
  1. BACTRIM DS [Concomitant]
     Active Substance: SULFAMETHOXAZOLE\TRIMETHOPRIM
     Indication: PRODUCT USED FOR UNKNOWN INDICATION
  2. PEGASPARGASE [Suspect]
     Active Substance: PEGASPARGASE
     Dosage: 6175 IU, DAY 4
     Route: 042
     Dates: start: 20180621
  3. AMLODIPINE [Concomitant]
     Active Substance: AMLODIPINE BESYLATE
     Indication: PRODUCT USED FOR UNKNOWN INDICATION
  4. LEVOCARNITINE. [Concomitant]
     Active Substance: LEVOCARNITINE
     Indication: PRODUCT USED FOR UNKNOWN INDICATION
  5. METHOTREXATE. [Suspect]
     Active Substance: METHOTREXATE
     Indication: ACUTE LYMPHOCYTIC LEUKAEMIA
     Dosage: 15 MG, DAY 1
     Route: 037
     Dates: start: 20180618
  6. RUXOLITINIB [Suspect]
     Active Substance: RUXOLITINIB
     Indication: ACUTE LYMPHOCYTIC LEUKAEMIA
     Dosage: 80 MG, 2X/DAY:BID
     Route: 048
     Dates: start: 20171219, end: 20180625
  7. RIVAROXABAN [Concomitant]
     Active Substance: RIVAROXABAN
     Indication: PRODUCT USED FOR UNKNOWN INDICATION
  8. DOXORUBICIN [Suspect]
     Active Substance: DOXORUBICIN
     Indication: ACUTE LYMPHOCYTIC LEUKAEMIA
     Dosage: 25 MG/M2, ON DAYS 1,8,15
     Route: 042
  9. DEXAMETHASONE. [Suspect]
     Active Substance: DEXAMETHASONE
     Indication: ACUTE LYMPHOCYTIC LEUKAEMIA
     Dosage: 5 MG/M2, 2X/DAY:BID
     Route: 048
     Dates: start: 20180618
  10. RUXOLITINIB [Suspect]
     Active Substance: RUXOLITINIB
     Dosage: 80 MG, 2X/DAY:BID
     Route: 048
     Dates: start: 20180626
  11. DOXORUBICIN [Suspect]
     Active Substance: DOXORUBICIN
     Dosage: 62 MG, UNK
     Route: 042
     Dates: start: 20180618
  12. VINCRISTINE [Suspect]
     Active Substance: VINCRISTINE
     Dosage: 2 MG, UNK
     Route: 042
     Dates: start: 20180626
  13. PEGASPARGASE [Suspect]
     Active Substance: PEGASPARGASE
     Indication: ACUTE LYMPHOCYTIC LEUKAEMIA
     Dosage: 1500 IU/M2 ON DAY 4
     Route: 042
  14. VINCRISTINE [Suspect]
     Active Substance: VINCRISTINE
     Indication: ACUTE LYMPHOCYTIC LEUKAEMIA
     Dosage: 1.5 MG/M2, ON DAYS 1, 8, 15
     Route: 042
     Dates: start: 20180103, end: 20180625
  15. CHOLECALCIFEROL [Concomitant]
     Active Substance: CHOLECALCIFEROL
     Indication: PRODUCT USED FOR UNKNOWN INDICATION

REACTIONS (9)
  - Parainfluenzae virus infection [Recovering/Resolving]
  - Febrile neutropenia [Recovering/Resolving]
  - Escherichia bacteraemia [Recovering/Resolving]
  - Bronchopulmonary aspergillosis [Recovering/Resolving]
  - Pneumonia [Not Recovered/Not Resolved]
  - Myositis [Recovering/Resolving]
  - Septic shock [Recovering/Resolving]
  - Hyperglycaemia [Recovered/Resolved]
  - Cellulitis [Recovering/Resolving]

NARRATIVE: CASE EVENT DATE: 20180625
